FAERS Safety Report 8348900-4 (Version None)
Quarter: 2012Q2

REPORT INFORMATION
  Report Type: 
  Country: None (occurrence: None)
  Receive Date: 20120508
  Receipt Date: 20120427
  Transmission Date: 20120825
  Serious: Yes (Hospitalization, Other)
  Sender: FDA-Public Use
  Company Number: 2012SP013851

PATIENT
  Sex: Male

DRUGS (7)
  1. RIBAVIRIN [Suspect]
     Indication: HEPATITIS C
     Dosage: ;UNK;UNK;UNK;UNK;UNK;UNK
     Dates: start: 20120227
  2. RIBAVIRIN [Suspect]
     Indication: HEPATITIS C
     Dosage: ;UNK;UNK;UNK;UNK;UNK;UNK
     Dates: start: 20120306
  3. RIBAVIRIN [Suspect]
     Indication: HEPATITIS C
     Dosage: ;UNK;UNK;UNK;UNK;UNK;UNK
     Dates: start: 20070701, end: 20080707
  4. VICTRELIS [Suspect]
     Indication: HEPATITIS C
     Dosage: ;UNK;UNK
     Dates: start: 20120404
  5. PEGASYS [Suspect]
     Indication: HEPATITIS C
     Dosage: ;UNK;UNK;UNK;UNK;UNK;UNK
     Dates: start: 20120227
  6. PEGASYS [Suspect]
     Indication: HEPATITIS C
     Dosage: ;UNK;UNK;UNK;UNK;UNK;UNK
     Dates: start: 20120306
  7. PEGASYS [Suspect]
     Indication: HEPATITIS C
     Dosage: ;UNK;UNK;UNK;UNK;UNK;UNK
     Dates: start: 20070701, end: 20080701

REACTIONS (16)
  - FATIGUE [None]
  - KIDNEY INFECTION [None]
  - ANAEMIA [None]
  - PRURITUS [None]
  - INJECTION SITE HAEMATOMA [None]
  - COMA [None]
  - PANCREATITIS [None]
  - VARICES OESOPHAGEAL [None]
  - NAUSEA [None]
  - ASCITES [None]
  - HEPATIC ENCEPHALOPATHY [None]
  - OEDEMA PERIPHERAL [None]
  - TYPE 1 DIABETES MELLITUS [None]
  - GASTROINTESTINAL HAEMORRHAGE [None]
  - CYSTITIS [None]
  - BLOOD SODIUM DECREASED [None]
